FAERS Safety Report 14284147 (Version 4)
Quarter: 2018Q1

REPORT INFORMATION
  Report Type: Report from Study
  Country: US (occurrence: US)
  Receive Date: 20171214
  Receipt Date: 20180302
  Transmission Date: 20180509
  Serious: Yes (Death, Hospitalization, Other)
  Sender: FDA-Public Use
  Company Number: US-BAYER-2017-215947

PATIENT
  Age: 76 Year
  Sex: Male

DRUGS (3)
  1. LACTULOSE. [Concomitant]
     Active Substance: LACTULOSE
     Dosage: UNK
  2. NEXAVAR [Suspect]
     Active Substance: SORAFENIB
     Indication: HEPATOCELLULAR CARCINOMA
     Dosage: 400 MG, BID
     Route: 048
  3. NEXAVAR [Suspect]
     Active Substance: SORAFENIB
     Indication: HEPATOCELLULAR CARCINOMA
     Dosage: 400 MG, BID
     Route: 048
     Dates: start: 20171104, end: 20180115

REACTIONS (37)
  - Intra-abdominal fluid collection [Recovering/Resolving]
  - Ammonia increased [None]
  - Blood pressure increased [Not Recovered/Not Resolved]
  - Nausea [None]
  - Vomiting [Recovered/Resolved]
  - Death [Fatal]
  - Abdominal distension [None]
  - Prostatomegaly [None]
  - Diarrhoea [Recovered/Resolved]
  - Nausea [Recovered/Resolved]
  - Pain in extremity [Recovering/Resolving]
  - Abdominal pain upper [Recovered/Resolved]
  - Delirium [None]
  - Exercise tolerance decreased [None]
  - Therapeutic response unexpected [None]
  - Exercise tolerance decreased [None]
  - Chromaturia [Recovered/Resolved]
  - Tremor [None]
  - Flatulence [None]
  - Blood pressure systolic increased [Recovered/Resolved]
  - Unevaluable event [Not Recovered/Not Resolved]
  - Nausea [Recovered/Resolved]
  - Diarrhoea [None]
  - Decreased appetite [Recovering/Resolving]
  - Dysphonia [Recovered/Resolved]
  - Asthenia [None]
  - Oedema [Recovering/Resolving]
  - Paracentesis [None]
  - Urine flow decreased [Recovering/Resolving]
  - Dyspnoea [None]
  - Balance disorder [Recovering/Resolving]
  - Palmoplantar keratoderma [Recovering/Resolving]
  - Fatigue [Recovering/Resolving]
  - Eructation [Not Recovered/Not Resolved]
  - Diarrhoea [None]
  - Abdominal pain [None]
  - Vomiting [None]

NARRATIVE: CASE EVENT DATE: 2017
